FAERS Safety Report 6314492-4 (Version None)
Quarter: 2009Q3

REPORT INFORMATION
  Report Type: 
  Country: None (occurrence: None)
  Receive Date: 20090817
  Receipt Date: 20090805
  Transmission Date: 20100115
  Serious: Yes (Hospitalization)
  Sender: FDA-Public Use
  Company Number: 2009-03246

PATIENT
  Sex: Male
  Weight: 80 kg

DRUGS (3)
  1. VELCADE [Suspect]
     Indication: MULTIPLE MYELOMA
     Dosage: 2.5 MG, INTRAVENOUS
     Route: 042
     Dates: start: 20090319, end: 20090723
  2. PALLODON (HYDROMORPHONE HYDROCHLORIDE) [Concomitant]
  3. RANITIDINE HCL [Concomitant]

REACTIONS (4)
  - ENTERITIS [None]
  - LEUKOPENIA [None]
  - SUBILEUS [None]
  - THROMBOCYTOPENIA [None]
